FAERS Safety Report 9678959 (Version 1)
Quarter: 2013Q4

REPORT INFORMATION
  Report Type: Spontaneous
  Country: US (occurrence: None)
  Receive Date: 20131107
  Receipt Date: 20131107
  Transmission Date: 20140711
  Serious: Yes (Hospitalization, Other)
  Sender: FDA-Public Use
  Company Number: SYM-2013-12280

PATIENT
  Age: 58 Year
  Sex: Female

DRUGS (2)
  1. DILTIAZEM [Suspect]
     Indication: PRODUCT USED FOR UNKNOWN INDICATION
     Dosage: 30-40 PILLS
  2. INSULIN [Suspect]
     Indication: TOXICITY TO VARIOUS AGENTS
     Dosage: CONCENTRATION OF 1 U/ML AT A RATE OF 1 U/KG/HR AND TITRATED TO A MAXIMUM OF 6 U/KG/HR

REACTIONS (8)
  - Overdose [None]
  - Atrioventricular block first degree [None]
  - Fluid overload [None]
  - Pulmonary oedema [None]
  - Generalised oedema [None]
  - Respiratory failure [None]
  - Dialysis [None]
  - Drug screen positive [None]
